FAERS Safety Report 8258128-4 (Version None)
Quarter: 2012Q2

REPORT INFORMATION
  Report Type: 
  Country: None (occurrence: None)
  Receive Date: 20120404
  Receipt Date: 20120327
  Transmission Date: 20120825
  Serious: Yes (Hospitalization)
  Sender: FDA-Public Use
  Company Number: PHHY2011SG91821

PATIENT
  Sex: Male

DRUGS (3)
  1. GLEEVEC [Suspect]
     Indication: CHRONIC MYELOID LEUKAEMIA
     Dosage: 400 MG, DAILY
     Route: 048
     Dates: start: 20110520
  2. GABAPENTIN [Concomitant]
     Dosage: 300 MG, TID
  3. ARCOXIA [Concomitant]
     Dosage: 120 MG, OM

REACTIONS (5)
  - NEURALGIA [None]
  - ENTEROCUTANEOUS FISTULA [None]
  - PELVIC MASS [None]
  - FISTULA DISCHARGE [None]
  - NEOPLASM RECURRENCE [None]
